FAERS Safety Report 7658830-9 (Version None)
Quarter: 2011Q3

REPORT INFORMATION
  Report Type: 
  Country: None (occurrence: None)
  Receive Date: 20110805
  Receipt Date: 20110726
  Transmission Date: 20111222
  Serious: Yes (Other)
  Sender: FDA-Public Use
  Company Number: US-AMGEN-USASP2011026767

PATIENT
  Age: 47 Year
  Sex: Female
  Weight: 118 kg

DRUGS (5)
  1. RIBAVIRIN [Concomitant]
     Dosage: 400 MG, QD
     Route: 048
  2. PEGASYS [Concomitant]
     Dosage: 180 MG, QD
     Route: 048
     Dates: start: 20101101
  3. PROCRIT [Suspect]
  4. PROCRIT [Suspect]
     Indication: HEPATITIS C
     Dosage: 40000 IU, QWK
     Route: 058
     Dates: start: 20091101, end: 20100901
  5. LEVOTHYROXINE SODIUM [Concomitant]
     Dosage: UNK UNK, QD
     Route: 048

REACTIONS (5)
  - GENERAL PHYSICAL HEALTH DETERIORATION [None]
  - ALOPECIA [None]
  - DYSPNOEA [None]
  - GAIT DISTURBANCE [None]
  - WEIGHT DECREASED [None]
